FAERS Safety Report 4698392-1 (Version None)
Quarter: 2005Q2

REPORT INFORMATION
  Report Type: 
  Country: None (occurrence: None)
  Receive Date: 20050621
  Receipt Date: 20050609
  Transmission Date: 20051028
  Serious: Yes (Hospitalization)
  Sender: FDA-Public Use
  Company Number: 2005079560

PATIENT
  Age: 73 Year
  Sex: Female
  Weight: 65 kg

DRUGS (2)
  1. ACCUZIDE (HYDROCHLOROTHIAZIDE, QUINAPRIL) [Suspect]
     Indication: HYPERTENSION
     Dosage: ORAL
     Route: 048
  2. METOPROLOL [Concomitant]

REACTIONS (10)
  - BALANCE DISORDER [None]
  - CONSTIPATION [None]
  - DEHYDRATION [None]
  - DEPRESSION [None]
  - DIZZINESS [None]
  - ELECTROLYTE IMBALANCE [None]
  - HYPERTENSIVE CRISIS [None]
  - MYALGIA [None]
  - NAUSEA [None]
  - TINNITUS [None]
